FAERS Safety Report 5085059-3 (Version None)
Quarter: 2006Q3

REPORT INFORMATION
  Report Type: 
  Country: None (occurrence: None)
  Receive Date: 20060815
  Receipt Date: 20060802
  Transmission Date: 20061208
  Serious: Yes (Death, Hospitalization, Other)
  Sender: FDA-Public Use
  Company Number: US200608000766

PATIENT
  Age: 39 Year
  Sex: Female

DRUGS (7)
  1. CEFAZOLIN SODIUM [Suspect]
     Indication: PROPHYLAXIS
     Dosage: 12.5 , INTRATRACHEAL
     Route: 039
  2. MEPERIDINE HCL [Concomitant]
  3. PROMETHAZINE [Concomitant]
  4. LIDOCAINE HCL (LIDOCAINE HYDROCHLORIDE) [Concomitant]
  5. MIDAZOLAM [Concomitant]
  6. OMNIPAQUE ^AMERSHAM^ (IOHEXOL) [Concomitant]
  7. BELDIPIN (BELLADONNA EXTRACT, ETHYLMORPHINE, NORAMIDOPYRINE, PAPAVERIN [Concomitant]

REACTIONS (21)
  - ABNORMAL BEHAVIOUR [None]
  - ACIDOSIS [None]
  - BACK PAIN [None]
  - BRAIN OEDEMA [None]
  - CARDIO-RESPIRATORY ARREST [None]
  - COMA [None]
  - CONVULSION [None]
  - DISORIENTATION [None]
  - DRUG INEFFECTIVE [None]
  - DRUG INTERACTION [None]
  - DYSTONIA [None]
  - GENERAL PHYSICAL HEALTH DETERIORATION [None]
  - HYPERCAPNIA [None]
  - INCORRECT ROUTE OF DRUG ADMINISTRATION [None]
  - MYDRIASIS [None]
  - OXYGEN SATURATION DECREASED [None]
  - POST PROCEDURAL COMPLICATION [None]
  - POST PROCEDURAL VOMITING [None]
  - PROCEDURAL PAIN [None]
  - PULMONARY ALVEOLAR HAEMORRHAGE [None]
  - VENTRICULAR TACHYCARDIA [None]
